FAERS Safety Report 4598036-3 (Version None)
Quarter: 2005Q1

REPORT INFORMATION
  Report Type: 
  Country: None (occurrence: None)
  Receive Date: 20050207
  Receipt Date: 20040316
  Transmission Date: 20050727
  Serious: Yes (Hospitalization)
  Sender: FDA-Public Use
  Company Number: MEDI-0001599

PATIENT
  Sex: Male

DRUGS (4)
  1. ETHYOL [Suspect]
     Indication: CHEMOTHERAPY
  2. ETHYOL [Suspect]
     Indication: RADIOTHERAPY
  3. UNKNOWN CHEMOTHERAPY DRUG [Concomitant]
  4. RADIATION THERAPY [Concomitant]

REACTIONS (1)
  - RASH GENERALISED [None]
